FAERS Safety Report 15965537 (Version 3)
Quarter: 2019Q1

REPORT INFORMATION
  Report Type: Report from Study
  Country: JP (occurrence: JP)
  Receive Date: 20190215
  Receipt Date: 20190326
  Transmission Date: 20190418
  Serious: Yes (Death, Hospitalization, Other)
  Sender: FDA-Public Use
  Company Number: JP-ROCHE-1921007

PATIENT
  Age: 55 Year
  Sex: Male

DRUGS (11)
  1. TEMODAL [Suspect]
     Active Substance: TEMOZOLOMIDE
     Route: 048
     Dates: start: 20170425, end: 20170429
  2. BEVACIZUMAB. [Suspect]
     Active Substance: BEVACIZUMAB
     Indication: GLIOBLASTOMA
     Dosage: MOST RECENT DOSE: 10/JUN/2017
     Route: 041
     Dates: start: 20160921
  3. TEMODAL [Suspect]
     Active Substance: TEMOZOLOMIDE
     Indication: GLIOBLASTOMA
     Route: 048
     Dates: start: 20161208, end: 20161212
  4. TEMODAL [Suspect]
     Active Substance: TEMOZOLOMIDE
     Indication: GLIOBLASTOMA
     Route: 048
     Dates: start: 20160831, end: 20161012
  5. TEMODAL [Suspect]
     Active Substance: TEMOZOLOMIDE
     Route: 048
     Dates: start: 20170130, end: 20170203
  6. TEMODAL [Suspect]
     Active Substance: TEMOZOLOMIDE
     Route: 048
     Dates: start: 20170524, end: 20170528
  7. TEMODAL [Suspect]
     Active Substance: TEMOZOLOMIDE
     Dosage: MOST RECENT DOSE: 24/JUN/2017
     Route: 048
     Dates: start: 20170620
  8. TEMODAL [Suspect]
     Active Substance: TEMOZOLOMIDE
     Indication: GLIOBLASTOMA
     Route: 048
     Dates: start: 20161107, end: 20161111
  9. TEMODAL [Suspect]
     Active Substance: TEMOZOLOMIDE
     Route: 048
     Dates: start: 20170327, end: 20170331
  10. TEMODAL [Suspect]
     Active Substance: TEMOZOLOMIDE
     Route: 048
     Dates: start: 20170105, end: 20170109
  11. TEMODAL [Suspect]
     Active Substance: TEMOZOLOMIDE
     Route: 048
     Dates: start: 20170227, end: 20170303

REACTIONS (5)
  - Glioblastoma [Fatal]
  - Lymphocyte count decreased [Not Recovered/Not Resolved]
  - Cerebral haemorrhage [Not Recovered/Not Resolved]
  - Spinal cord neoplasm [Unknown]
  - White blood cell count decreased [Recovered/Resolved]

NARRATIVE: CASE EVENT DATE: 20161014
